FAERS Safety Report 14379687 (Version 1)
Quarter: 2018Q1

REPORT INFORMATION
  Report Type: Report from Study
  Country: US (occurrence: US)
  Receive Date: 20180112
  Receipt Date: 20180112
  Transmission Date: 20180509
  Serious: Yes (Death)
  Sender: FDA-Public Use
  Company Number: US-CIPLA LTD.-2018US01012

PATIENT

DRUGS (3)
  1. PACLITAXEL. [Suspect]
     Active Substance: PACLITAXEL
     Indication: NON-SMALL CELL LUNG CANCER
     Dosage: 200 MG/M2 OVER 3 HOURS ON DAY 1
  2. OLARATUMAB [Suspect]
     Active Substance: OLARATUMAB
     Indication: NON-SMALL CELL LUNG CANCER
     Dosage: 15 MG/KG, ON DAYS 1 AND 8
  3. CARBOPLATIN. [Suspect]
     Active Substance: CARBOPLATIN
     Indication: NON-SMALL CELL LUNG CANCER
     Dosage: AUC 6 MG H/L IN A 30 MIN INFUSION ON DAY 1

REACTIONS (1)
  - Disease progression [Fatal]
